FAERS Safety Report 18846365 (Version 1)
Quarter: 2021Q1

REPORT INFORMATION
  Report Type: Report from Study
  Country: US (occurrence: US)
  Receive Date: 20210203
  Receipt Date: 20210203
  Transmission Date: 20210419
  Serious: No
  Sender: FDA-Public Use
  Company Number: US-EXELIXIS-CABO-20031400

PATIENT
  Sex: Male

DRUGS (3)
  1. PREDNISONE. [Concomitant]
     Active Substance: PREDNISONE
     Dosage: UNK
  2. CABOMETYX [Suspect]
     Active Substance: CABOZANTINIB S-MALATE
     Indication: RENAL CELL CARCINOMA
     Dosage: 60 MG, QD
     Dates: start: 20200610
  3. CABOMETYX [Suspect]
     Active Substance: CABOZANTINIB S-MALATE
     Indication: METASTASES TO LUNG
     Dosage: 40 MG, QD

REACTIONS (9)
  - Skin exfoliation [Recovered/Resolved]
  - Erythema [Unknown]
  - Fatigue [Unknown]
  - Dysphonia [Unknown]
  - Asthenia [Recovering/Resolving]
  - Glossodynia [Unknown]
  - Cough [Recovered/Resolved]
  - Dysgeusia [Not Recovered/Not Resolved]
  - Diarrhoea [Unknown]
